FAERS Safety Report 9211614 (Version 1)
Quarter: 2013Q2

REPORT INFORMATION
  Report Type: Spontaneous
  Country: US (occurrence: US)
  Receive Date: 20130404
  Receipt Date: 20130404
  Transmission Date: 20140414
  Serious: No
  Sender: FDA-Public Use
  Company Number: US-AMGEN-USASP2013019282

PATIENT
  Age: 10 Year
  Sex: 0

DRUGS (1)
  1. ENBREL [Suspect]
     Indication: JUVENILE IDIOPATHIC ARTHRITIS
     Dosage: UNK

REACTIONS (3)
  - Injection site reaction [Unknown]
  - Injection site urticaria [Unknown]
  - Injection site erythema [Unknown]
